FAERS Safety Report 13616693 (Version 1)
Quarter: 2017Q2

REPORT INFORMATION
  Report Type: Spontaneous
  Country: US (occurrence: US)
  Receive Date: 20170606
  Receipt Date: 20170606
  Transmission Date: 20170830
  Serious: No
  Sender: FDA-Public Use
  Company Number: US-SA-2016SA112034

PATIENT
  Sex: Female

DRUGS (2)
  1. SOLOSTAR [Concomitant]
     Active Substance: DEVICE
     Route: 065
  2. LANTUS SOLOSTAR [Suspect]
     Active Substance: INSULIN GLARGINE
     Indication: TYPE 2 DIABETES MELLITUS
     Dosage: TREATMENT START DATE: 2-3 YEARS DOSE:50 UNIT(S)
     Route: 065

REACTIONS (4)
  - Throat irritation [Unknown]
  - Viral upper respiratory tract infection [Unknown]
  - Pharyngeal oedema [Unknown]
  - Product use issue [Unknown]
